FAERS Safety Report 10728548 (Version 1)
Quarter: 2015Q1

REPORT INFORMATION
  Report Type: Spontaneous
  Country: US (occurrence: US)
  Receive Date: 20150122
  Receipt Date: 20150122
  Transmission Date: 20150721
  Serious: Yes (Other)
  Sender: FDA-Public Use
  Company Number: US-HORIZON-ACT-0007-2015

PATIENT
  Age: 9 Year
  Sex: Male

DRUGS (1)
  1. ACTIMMUNE [Suspect]
     Active Substance: INTERFERON GAMMA-1B
     Indication: INTERFERON GAMMA RECEPTOR DEFICIENCY
     Dosage: }50 ?G
     Dates: start: 2009, end: 2014

REACTIONS (3)
  - Off label use [Unknown]
  - B-cell lymphoma [Unknown]
  - Bone marrow transplant [None]
